FAERS Safety Report 9869745 (Version 1)
Quarter: 2014Q1

REPORT INFORMATION
  Report Type: Spontaneous
  Country: US (occurrence: US)
  Receive Date: 20140205
  Receipt Date: 20140205
  Transmission Date: 20141002
  Serious: No
  Sender: FDA-Public Use
  Company Number: US-GLAXOSMITHKLINE-A1022675A

PATIENT
  Age: 59 Year
  Sex: Male

DRUGS (2)
  1. ARIXTRA [Suspect]
     Indication: COAGULOPATHY
     Dosage: 7.5MG PER DAY
     Route: 058
     Dates: start: 201301
  2. CONCURRENT MEDICATIONS [Concomitant]

REACTIONS (2)
  - Injection site mass [Unknown]
  - Injection site haemorrhage [Unknown]
